FAERS Safety Report 6384596-9 (Version None)
Quarter: 2009Q4

REPORT INFORMATION
  Report Type: 
  Country: None (occurrence: None)
  Receive Date: 20091001
  Receipt Date: 20090921
  Transmission Date: 20100525
  Serious: Yes (Hospitalization)
  Sender: FDA-Public Use
  Company Number: PHHY2009IT28506

PATIENT
  Sex: Male

DRUGS (7)
  1. TASIGNA [Suspect]
     Indication: CHRONIC MYELOID LEUKAEMIA
     Dosage: 800 MG/DAY
     Dates: start: 20090416, end: 20090520
  2. WARFARIN SODIUM [Concomitant]
  3. LANSOPRAZOLE [Concomitant]
  4. BISOPROLOL FUMARATE [Concomitant]
  5. ZESTRIL [Concomitant]
  6. SELECTIN [Concomitant]
  7. ESKIM [Concomitant]

REACTIONS (4)
  - ANAEMIA [None]
  - BONE MARROW DISORDER [None]
  - MEGAKARYOCYTES INCREASED [None]
  - THROMBOCYTOPENIA [None]
